FAERS Safety Report 24374329 (Version 1)
Quarter: 2024Q3

REPORT INFORMATION
  Report Type: Spontaneous
  Country: CA (occurrence: CA)
  Receive Date: 20240927
  Receipt Date: 20240927
  Transmission Date: 20241017
  Serious: Yes (Death, Other)
  Sender: PURDUE
  Company Number: None

PATIENT

DRUGS (1)
  1. BUPRENORPHINE [Suspect]
     Active Substance: BUPRENORPHINE
     Indication: Drug dependence
     Dosage: 1 EVERY 1 MONTHS
     Route: 065

REACTIONS (3)
  - Death [Fatal]
  - Drug delivery system removal [Fatal]
  - Wrong technique in product usage process [Fatal]
